FAERS Safety Report 4639109-6 (Version None)
Quarter: 2005Q2

REPORT INFORMATION
  Report Type: 
  Country: None (occurrence: None)
  Receive Date: 20050419
  Receipt Date: 20050317
  Transmission Date: 20051028
  Serious: Yes (Other)
  Sender: FDA-Public Use
  Company Number: PHBS2005ES03913

PATIENT
  Age: 21 Year
  Sex: Male

DRUGS (2)
  1. VOLTAREN [Suspect]
     Indication: MYALGIA
     Dosage: 75 MG/DAY
     Route: 030
     Dates: start: 20030915, end: 20030916
  2. VOLTAREN [Suspect]
     Dosage: 50 MG, Q8H
     Route: 048
     Dates: start: 20030915, end: 20030919

REACTIONS (2)
  - CROHN'S DISEASE [None]
  - GASTRIC HAEMORRHAGE [None]
